FAERS Safety Report 16027295 (Version 1)
Quarter: 2019Q1

REPORT INFORMATION
  Report Type: Report from Study
  Country: None (occurrence: CA)
  Receive Date: 20190303
  Receipt Date: 20190303
  Transmission Date: 20190418
  Serious: Yes (Disabling, Other)
  Sender: FDA-Public Use
  Company Number: CA-ABBVIE-18K-028-2488144-00

PATIENT
  Age: 33 Year
  Sex: Female
  Weight: 78.5 kg

DRUGS (4)
  1. CEPHALEXIN. [Concomitant]
     Active Substance: CEPHALEXIN
     Indication: PRODUCT USED FOR UNKNOWN INDICATION
     Route: 048
     Dates: start: 20181029, end: 20181104
  2. NITROFURANTOIN. [Concomitant]
     Active Substance: NITROFURANTOIN
     Indication: PRODUCT USED FOR UNKNOWN INDICATION
     Route: 048
     Dates: start: 20181210, end: 20181214
  3. HUMIRA [Suspect]
     Active Substance: ADALIMUMAB
     Indication: ANKYLOSING SPONDYLITIS
     Route: 058
     Dates: start: 20170621, end: 20180516
  4. AMOXICILLIN. [Concomitant]
     Active Substance: AMOXICILLIN
     Indication: PRODUCT USED FOR UNKNOWN INDICATION
     Route: 048
     Dates: start: 20181015, end: 20181021

REACTIONS (4)
  - Gestational diabetes [Not Recovered/Not Resolved]
  - Spondylitis [Not Recovered/Not Resolved]
  - Urinary tract infection enterococcal [Recovered/Resolved]
  - Exposure during pregnancy [Unknown]

NARRATIVE: CASE EVENT DATE: 201812
